FAERS Safety Report 24982529 (Version 1)
Quarter: 2025Q1

REPORT INFORMATION
  Report Type: Spontaneous
  Country: US (occurrence: US)
  Receive Date: 20250218
  Receipt Date: 20250218
  Transmission Date: 20250408
  Serious: No
  Sender: PFIZER
  Company Number: US-PFIZER INC-PV202500018761

PATIENT
  Age: 70 Year
  Sex: Female

DRUGS (2)
  1. INLYTA [Suspect]
     Active Substance: AXITINIB
  2. ZOMETA [Suspect]
     Active Substance: ZOLEDRONIC ACID

REACTIONS (2)
  - Headache [Unknown]
  - Fatigue [Unknown]
